FAERS Safety Report 4296853-0 (Version None)
Quarter: 2004Q1

REPORT INFORMATION
  Report Type: 
  Country: None (occurrence: None)
  Receive Date: 20040126
  Receipt Date: 20030908
  Transmission Date: 20041129
  Serious: No
  Sender: FDA-Public Use
  Company Number: USA030946509

PATIENT
  Age: 8 Year
  Sex: Male
  Weight: 27 kg

DRUGS (1)
  1. STRATTERA [Suspect]
     Dosage: 5 MG/DAY
     Dates: end: 20030905

REACTIONS (6)
  - BLISTER INFECTED [None]
  - FEELING COLD [None]
  - NIGHTMARE [None]
  - PRURITUS [None]
  - RASH [None]
  - URTICARIA [None]
